FAERS Safety Report 8215619-X (Version None)
Quarter: 2012Q1

REPORT INFORMATION
  Report Type: 
  Country: None (occurrence: None)
  Receive Date: 20120316
  Receipt Date: 20120305
  Transmission Date: 20120608
  Serious: Yes (Hospitalization, Other)
  Sender: FDA-Public Use
  Company Number: CA-ELI_LILLY_AND_COMPANY-CA201203001567

PATIENT
  Sex: Male

DRUGS (2)
  1. CARBOPLATIN [Concomitant]
     Indication: SMALL CELL LUNG CANCER METASTATIC
  2. GEMZAR [Suspect]
     Indication: NON-SMALL CELL LUNG CANCER METASTATIC
     Dosage: UNK
     Dates: start: 20120119

REACTIONS (4)
  - TACHYCARDIA [None]
  - LEFT VENTRICULAR DYSFUNCTION [None]
  - HYPOTENSION [None]
  - ATRIAL FLUTTER [None]
